FAERS Safety Report 23721153 (Version 1)
Quarter: 2024Q2

REPORT INFORMATION
  Report Type: Report from Study
  Country: US (occurrence: US)
  Receive Date: 20240409
  Receipt Date: 20240409
  Transmission Date: 20240716
  Serious: No
  Sender: FDA-Public Use
  Company Number: US-ACADIA PHARMACEUTICALS INC.-ACA-2024-PIM-001236

PATIENT
  Sex: Female

DRUGS (3)
  1. NUPLAZID [Suspect]
     Active Substance: PIMAVANSERIN TARTRATE
     Indication: Parkinson^s disease
     Dosage: 34 MILLIGRAM, QD
     Route: 048
     Dates: start: 20240124
  2. IMIPRAMIN HCL [Concomitant]
     Dosage: 25 MILLIGRAM
  3. MELOXICAM [Concomitant]
     Active Substance: MELOXICAM
     Dosage: 7.5MG

REACTIONS (1)
  - Condition aggravated [Not Recovered/Not Resolved]
